FAERS Safety Report 9481094 (Version 1)
Quarter: 2013Q3

REPORT INFORMATION
  Report Type: Spontaneous
  Country: US (occurrence: US)
  Receive Date: 20130828
  Receipt Date: 20130828
  Transmission Date: 20140515
  Serious: Yes (Death, Hospitalization)
  Sender: FDA-Public Use
  Company Number: US-AMGEN-KDL152967

PATIENT
  Sex: Male

DRUGS (3)
  1. ENBREL [Suspect]
     Indication: RHEUMATOID ARTHRITIS
     Dosage: 25 MG, 2 TIMES/WK
     Route: 058
     Dates: start: 20030127, end: 20030503
  2. METHOTREXATE [Concomitant]
     Dosage: UNK UNK, UNK
     Dates: start: 2000, end: 2003
  3. PREDNISONE [Concomitant]
     Dosage: UNK UNK, UNK
     Dates: start: 2000

REACTIONS (3)
  - Death [Fatal]
  - Pulmonary fibrosis [Fatal]
  - Nasopharyngitis [Unknown]
